FAERS Safety Report 17820825 (Version 17)
Quarter: 2025Q3

REPORT INFORMATION
  Report Type: Report from Study
  Country: US (occurrence: US)
  Receive Date: 20200525
  Receipt Date: 20250701
  Transmission Date: 20251020
  Serious: Yes (Other)
  Sender: TAKEDA
  Company Number: US-SHIRE-US202017113

PATIENT
  Age: 64 Year
  Sex: Female
  Weight: 81 kg

DRUGS (28)
  1. HUMAN IMMUNOGLOBULIN G\HYALURONIDASE RECOMBINANT HUMAN [Suspect]
     Active Substance: HUMAN IMMUNOGLOBULIN G\HYALURONIDASE (HUMAN RECOMBINANT)
     Indication: Immunodeficiency common variable
     Dosage: 40 GRAM, Q4WEEKS
  2. HUMAN IMMUNOGLOBULIN G\HYALURONIDASE RECOMBINANT HUMAN [Suspect]
     Active Substance: HUMAN IMMUNOGLOBULIN G\HYALURONIDASE (HUMAN RECOMBINANT)
     Dosage: 40 GRAM, MONTHLY
  3. ACETAMINOPHEN [Concomitant]
     Active Substance: ACETAMINOPHEN
  4. DIPHENHYDRAMINE [Concomitant]
     Active Substance: DIPHENHYDRAMINE
  5. SODIUM CHLORIDE [Concomitant]
     Active Substance: SODIUM CHLORIDE
  6. EPINEPHRINE [Concomitant]
     Active Substance: EPINEPHRINE
  7. MIRTAZAPINE [Concomitant]
     Active Substance: MIRTAZAPINE
  8. AMLODIPINE [Concomitant]
     Active Substance: AMLODIPINE BESYLATE
  9. MONTELUKAST [Concomitant]
     Active Substance: MONTELUKAST
  10. ATENOLOL [Concomitant]
     Active Substance: ATENOLOL
  11. LORATADINE [Concomitant]
     Active Substance: LORATADINE
  12. IBUPROFEN [Concomitant]
     Active Substance: IBUPROFEN
  13. FLUTICASONE [Concomitant]
     Active Substance: FLUTICASONE
  14. LEVOTHYROXINE [Concomitant]
     Active Substance: LEVOTHYROXINE
  15. ATORVASTATIN [Concomitant]
     Active Substance: ATORVASTATIN
  16. LEVETIRACETAM [Concomitant]
     Active Substance: LEVETIRACETAM
  17. QUETIAPINE [Concomitant]
     Active Substance: QUETIAPINE
  18. CYCLOBENZAPRINE [Concomitant]
     Active Substance: CYCLOBENZAPRINE
  19. Aller Flo [Concomitant]
  20. ATORVASTATIN CALCIUM [Concomitant]
     Active Substance: ATORVASTATIN CALCIUM
  21. AUGMENTIN [Concomitant]
     Active Substance: AMOXICILLIN\CLAVULANATE POTASSIUM
  22. QUETIAPINE FUMARATE [Concomitant]
     Active Substance: QUETIAPINE FUMARATE
  23. CYCLOBENZAPRINE HYDROCHLORIDE [Concomitant]
     Active Substance: CYCLOBENZAPRINE HYDROCHLORIDE
  24. MONTELUKAST SODIUM [Concomitant]
     Active Substance: MONTELUKAST SODIUM
  25. LEVOTHYROXINE SODIUM [Concomitant]
     Active Substance: LEVOTHYROXINE SODIUM
  26. AMLODIPINE BESYLATE [Concomitant]
     Active Substance: AMLODIPINE BESYLATE
  27. LIDOCAINE [Concomitant]
     Active Substance: LIDOCAINE
  28. DIPHENHYDRAMINE HYDROCHLORIDE [Concomitant]
     Active Substance: DIPHENHYDRAMINE HYDROCHLORIDE

REACTIONS (19)
  - Ankle fracture [Unknown]
  - Cerebral haemorrhage [Unknown]
  - Colitis [Unknown]
  - Aortic aneurysm [Unknown]
  - Tooth infection [Unknown]
  - Gastrointestinal disorder [Unknown]
  - Injection site haemorrhage [Unknown]
  - Fall [Unknown]
  - Needle issue [Unknown]
  - Product dose omission issue [Unknown]
  - Catheter site bruise [Unknown]
  - Tympanic membrane perforation [Unknown]
  - Malaise [Unknown]
  - Infusion site pain [Unknown]
  - Depressed mood [Recovering/Resolving]
  - Feeling abnormal [Recovering/Resolving]
  - Bronchitis [Unknown]
  - Ear infection [Unknown]
  - Insurance issue [Unknown]

NARRATIVE: CASE EVENT DATE: 20210404
